FAERS Safety Report 5800277-1 (Version None)
Quarter: 2008Q3

REPORT INFORMATION
  Report Type: 
  Country: None (occurrence: None)
  Receive Date: 20080703
  Receipt Date: 20080630
  Transmission Date: 20090109
  Serious: Yes (Life-Threatening, Other)
  Sender: FDA-Public Use
  Company Number: PHBS2008CA04935

PATIENT
  Age: 29 Year
  Sex: Male

DRUGS (5)
  1. METOPROLOL SUCCINATE [Suspect]
     Indication: HYPERTENSION
     Dosage: 5 MG, UNK
     Route: 042
  2. METOPROLOL SUCCINATE [Suspect]
     Dosage: 3 MG, UNK
  3. EPINEPHRINE [Concomitant]
     Route: 061
  4. EPINEPHRINE [Concomitant]
     Route: 042
  5. LIDOCAIN-ADRENALIN [Concomitant]

REACTIONS (19)
  - AGITATION [None]
  - ANOXIC ENCEPHALOPATHY [None]
  - BLOOD PRESSURE DECREASED [None]
  - CARDIOGENIC SHOCK [None]
  - CARDIOPULMONARY BYPASS [None]
  - CREPITATIONS [None]
  - ELECTROCARDIOGRAM ST-T CHANGE [None]
  - ELECTROMECHANICAL DISSOCIATION [None]
  - HAEMODYNAMIC INSTABILITY [None]
  - HEART RATE INCREASED [None]
  - NEUROLOGICAL SYMPTOM [None]
  - OXYGEN SATURATION DECREASED [None]
  - PULMONARY OEDEMA [None]
  - RESPIRATORY DISTRESS [None]
  - RESPIRATORY RATE INCREASED [None]
  - RESUSCITATION [None]
  - SALIVARY HYPERSECRETION [None]
  - VENTRICULAR HYPOKINESIA [None]
  - VENTRICULAR TACHYCARDIA [None]
